FAERS Safety Report 20060593 (Version 3)
Quarter: 2022Q1

REPORT INFORMATION
  Report Type: Spontaneous
  Country: PL (occurrence: PL)
  Receive Date: 20211112
  Receipt Date: 20220302
  Transmission Date: 20220423
  Serious: Yes (Other)
  Sender: FDA-Public Use
  Company Number: PL-UCBSA-2021050370

PATIENT
  Age: 60 Year
  Sex: Male

DRUGS (4)
  1. CETIRIZINE HYDROCHLORIDE\PSEUDOEPHEDRINE HYDROCHLORIDE [Suspect]
     Active Substance: CETIRIZINE HYDROCHLORIDE\PSEUDOEPHEDRINE HYDROCHLORIDE
     Indication: Post ablation syndrome
     Dosage: 1 DOSAGE FORM, 2X/DAY (BID)
     Route: 065
  2. CETIRIZINE HYDROCHLORIDE\PSEUDOEPHEDRINE HYDROCHLORIDE [Suspect]
     Active Substance: CETIRIZINE HYDROCHLORIDE\PSEUDOEPHEDRINE HYDROCHLORIDE
     Indication: Off label use
     Route: 065
  3. RINOPANTEINA [Concomitant]
     Indication: Post ablation syndrome
     Dosage: 10 GRAM
     Route: 045
  4. DICORTINEFF [FLUDROCORTISONE ACETATE;FRAMYCETIN SULFATE;GRAMICIDIN] [Concomitant]
     Indication: Post ablation syndrome
     Dosage: 5 MILLILITER
     Route: 065

REACTIONS (2)
  - Hypertension [Recovered/Resolved]
  - Off label use [Unknown]

NARRATIVE: CASE EVENT DATE: 20211007
